FAERS Safety Report 24603979 (Version 3)
Quarter: 2024Q4

REPORT INFORMATION
  Report Type: Report from Study
  Country: CA (occurrence: CA)
  Receive Date: 20241111
  Receipt Date: 20241217
  Transmission Date: 20250115
  Serious: Yes (Other)
  Sender: ALEXION PHARMACEUTICALS
  Company Number: CA-AstraZeneca-CH-00728889A

PATIENT
  Age: 79 Year
  Weight: 72 kg

DRUGS (10)
  1. ACALABRUTINIB [Suspect]
     Active Substance: ACALABRUTINIB
     Indication: Chronic lymphocytic leukaemia
     Dosage: 100 MILLIGRAM, BID
  2. ACALABRUTINIB [Suspect]
     Active Substance: ACALABRUTINIB
     Dosage: 100 MILLIGRAM, BID
     Route: 048
  3. ACALABRUTINIB [Suspect]
     Active Substance: ACALABRUTINIB
     Dosage: 100 MILLIGRAM, BID
  4. ACALABRUTINIB [Suspect]
     Active Substance: ACALABRUTINIB
     Dosage: 100 MILLIGRAM, BID
     Route: 048
  5. ARNUITY ELLIPTA [Concomitant]
     Active Substance: FLUTICASONE FUROATE
  6. ROSUVASTATIN [Concomitant]
     Active Substance: ROSUVASTATIN
  7. EZETIMIBE [Concomitant]
     Active Substance: EZETIMIBE
  8. TELMISARTAN [Concomitant]
     Active Substance: TELMISARTAN
  9. PINAVERIUM BROMIDE [Concomitant]
     Active Substance: PINAVERIUM BROMIDE
  10. LYRICA [Concomitant]
     Active Substance: PREGABALIN
     Dosage: 2 DOSAGE FORM, QHS

REACTIONS (4)
  - Gastric haemorrhage [Unknown]
  - Urinary bladder haemorrhage [Unknown]
  - Atrial fibrillation [Unknown]
  - Dizziness [Unknown]
